FAERS Safety Report 12743871 (Version 1)
Quarter: 2016Q3

REPORT INFORMATION
  Report Type: Spontaneous
  Country: FR (occurrence: FR)
  Receive Date: 20160914
  Receipt Date: 20160914
  Transmission Date: 20161109
  Serious: Yes (Hospitalization, Other)
  Sender: FDA-Public Use
  Company Number: FR-PFIZER INC-HQWYE683306FEB06

PATIENT
  Age: 15 Year
  Sex: Female

DRUGS (6)
  1. RHINADVIL [Suspect]
     Active Substance: IBUPROFEN\PSEUDOEPHEDRINE HYDROCHLORIDE
     Indication: RHINORRHOEA
  2. RESPILENE /00094201/ [Suspect]
     Active Substance: PHOLCODINE
     Indication: RHINORRHOEA
  3. DAFALGAN [Suspect]
     Active Substance: ACETAMINOPHEN
     Indication: INFLUENZA
     Dosage: 1500 MG (3 PILLS) A DAY, FREQUENCY UNKNOWN
  4. RHINADVIL [Suspect]
     Active Substance: IBUPROFEN\PSEUDOEPHEDRINE HYDROCHLORIDE
     Indication: INFLUENZA
     Dosage: 3 TABLETS A DAY, FREQUENCY UNKNOWN
     Route: 048
  5. RESPILENE /00094201/ [Suspect]
     Active Substance: PHOLCODINE
     Indication: INFLUENZA
     Dosage: 9 MG (3 TEASPOONS) A DAY, FREQUENCY UNKNOWN
     Route: 048
  6. DAFALGAN [Suspect]
     Active Substance: ACETAMINOPHEN
     Indication: RHINORRHOEA

REACTIONS (1)
  - Colitis ischaemic [Recovered/Resolved]
